FAERS Safety Report 7499177-3 (Version None)
Quarter: 2011Q2

REPORT INFORMATION
  Report Type: 
  Country: None (occurrence: None)
  Receive Date: 20110524
  Receipt Date: 20110511
  Transmission Date: 20111010
  Serious: Yes (Life-Threatening, Hospitalization, Other)
  Sender: FDA-Public Use
  Company Number: US-ELI_LILLY_AND_COMPANY-US201104005446

PATIENT
  Sex: Female

DRUGS (21)
  1. FORTEO [Suspect]
     Dosage: 20 UG, QD
     Route: 065
  2. VITAMIN D [Concomitant]
  3. VITAMIN B-12 [Concomitant]
  4. ANESTHETICS [Concomitant]
  5. PLAVIX [Concomitant]
     Dosage: 75 MG, EACH MORNING
  6. METAMUCIL-2 [Concomitant]
     Dosage: UNK, EACH EVENING
  7. CALCIUM CARBONATE [Concomitant]
  8. LOVAZA [Concomitant]
  9. ASCORBIC ACID [Concomitant]
  10. OMEPRAZOLE [Concomitant]
     Dosage: 40 MG, EACH MORNING
  11. CRESTOR [Concomitant]
     Dosage: 10 MG, EACH EVENING
  12. VITAMINS [Concomitant]
  13. BETA CAROTENE [Concomitant]
  14. OSTEO BI-FLEX [Concomitant]
  15. LOVAZA [Concomitant]
     Dosage: 1 MG, EACH EVENING
  16. FISH OIL [Concomitant]
  17. MAGNESIUM [Concomitant]
  18. PENTOXIFYLLINE [Concomitant]
     Dosage: 400 MG, PRN
  19. LISINOPRIL [Concomitant]
     Dosage: 10 MG, EACH EVENING
  20. FORTEO [Suspect]
     Indication: OSTEOPOROSIS
     Dosage: 20 UG, QD
     Route: 065
     Dates: start: 20091101, end: 20110201
  21. VITAMIN E [Concomitant]

REACTIONS (14)
  - POST PROCEDURAL COMPLICATION [None]
  - CHILLS [None]
  - PRODUCTIVE COUGH [None]
  - WEIGHT DECREASED [None]
  - DYSPNOEA [None]
  - THROAT TIGHTNESS [None]
  - ASTHENIA [None]
  - COLD SWEAT [None]
  - HYPERSENSITIVITY [None]
  - APNOEA [None]
  - VASCULAR OCCLUSION [None]
  - STENT REMOVAL [None]
  - VISION BLURRED [None]
  - CONTUSION [None]
